FAERS Safety Report 9662489 (Version 2)
Quarter: 2013Q4

REPORT INFORMATION
  Report Type: Spontaneous
  Country: US (occurrence: US)
  Receive Date: 20131031
  Receipt Date: 20131031
  Transmission Date: 20140711
  Serious: Yes (Death, Other)
  Sender: FDA-Public Use
  Company Number: US-NAPPMUNDI-USA-2011-0067679

PATIENT
  Age: 14 Year
  Sex: Female
  Weight: 53.06 kg

DRUGS (3)
  1. OXYCODONE HYDROCHLORIDE (SIMILAR TO NDA 22-272) [Suspect]
     Indication: DRUG ABUSE
     Dosage: UNK UNK, UNK
  2. XANAX [Suspect]
     Indication: DRUG ABUSE
     Dosage: UNK UNK, UNK
  3. CANNABIS [Suspect]
     Indication: DRUG ABUSE

REACTIONS (2)
  - Accidental overdose [Fatal]
  - Substance abuse [Unknown]
